FAERS Safety Report 4973970-0 (Version None)
Quarter: 2006Q2

REPORT INFORMATION
  Report Type: 
  Country: None (occurrence: None)
  Receive Date: 20060410
  Receipt Date: 20060329
  Transmission Date: 20061013
  Serious: Yes (Hospitalization)
  Sender: FDA-Public Use
  Company Number: 2006035312

PATIENT
  Age: 42 Year
  Sex: Male
  Weight: 83.9154 kg

DRUGS (8)
  1. SUTENT [Suspect]
     Indication: RENAL CELL CARCINOMA STAGE UNSPECIFIED
     Dosage: 50 MG (50 MG, 1 IN 1 D), ORAL
     Route: 048
     Dates: start: 20060123, end: 20060219
  2. BAY 43-9006 (BAY 43-9006) [Suspect]
     Indication: RENAL CELL CARCINOMA STAGE UNSPECIFIED
     Dosage: (2 IN 1 D), ORAL
     Route: 048
     Dates: start: 20060310, end: 20060323
  3. LOVENOX [Suspect]
     Indication: HAEMOPTYSIS
     Dosage: 160 MG (80 MG, 2 IN 1 D), INTRAMUSCULAR
     Route: 030
     Dates: start: 20060223
  4. OXYCONTIN [Concomitant]
  5. OXYCODONE (OXYCODONE) [Concomitant]
  6. SENNA (SENNA) [Concomitant]
  7. ATENOLOL [Concomitant]
  8. COLACE (DOCUSATE SODIUM) [Concomitant]

REACTIONS (4)
  - DYSPNOEA [None]
  - HAEMOPTYSIS [None]
  - MALIGNANT NEOPLASM PROGRESSION [None]
  - PLEURAL EFFUSION [None]
